FAERS Safety Report 14337519 (Version 5)
Quarter: 2021Q4

REPORT INFORMATION
  Report Type: Report from Study
  Country: FR (occurrence: FR)
  Receive Date: 20171229
  Receipt Date: 20211021
  Transmission Date: 20220303
  Serious: Yes (Hospitalization)
  Sender: FDA-Public Use
  Company Number: FR-SHIRE-FR201729713

PATIENT
  Sex: Female

DRUGS (15)
  1. METHOTREXATE [Suspect]
     Active Substance: METHOTREXATE
     Indication: Acute lymphocytic leukaemia
     Dosage: 12 MILLIGRAM, QD (12 MG, QD, 1X/DAY)/START:22-AUG-2017
     Route: 037
     Dates: end: 20171006
  2. DEXAMETHASONE [Suspect]
     Active Substance: DEXAMETHASONE
     Indication: Acute lymphocytic leukaemia
     Dosage: 4 MILLIGRAM, QD (4 MG, QD, 1X/DAY)/START DATE:20-SEP-2017
     Route: 048
     Dates: end: 20170924
  3. PEGASPARGASE [Suspect]
     Active Substance: PEGASPARGASE
     Indication: Acute lymphocytic leukaemia
     Dosage: 750 INTERNATIONAL UNIT, QD (750 IU, QD,1X/DAY)/START:21-AUG-2017
     Route: 042
     Dates: end: 20171004
  4. PEGASPARGASE [Suspect]
     Active Substance: PEGASPARGASE
     Dosage: 825 INTERNATIONAL UNIT (825 IU, UNK)
     Route: 042
  5. PEGASPARGASE [Suspect]
     Active Substance: PEGASPARGASE
     Dosage: 1250 INTERNATIONAL UNIT
     Route: 042
  6. PEGASPARGASE [Suspect]
     Active Substance: PEGASPARGASE
     Dosage: 825 INTERNATIONAL UNIT/ START DATE: 30-NOV-2017
     Route: 042
  7. MERCAPTOPURINE [Suspect]
     Active Substance: MERCAPTOPURINE
     Indication: Acute lymphocytic leukaemia
     Dosage: 34 MILLIGRAM, QD (34 MG, 1X/DAY: QD)/ START:22-AUG-2017
  8. MERCAPTOPURINE [Suspect]
     Active Substance: MERCAPTOPURINE
     Dosage: 34 MILLIGRAM, QD (34 MG, 1X/DAY: QD)/START:20-SEP-2017
     Route: 048
     Dates: end: 20171018
  9. CYTARABINE [Suspect]
     Active Substance: CYTARABINE
     Indication: Acute lymphocytic leukaemia
     Dosage: (49 MG, QD, 1X/DAY)/ START DATE: 06-OCT-2017
     Route: 042
     Dates: end: 20171021
  10. CYTARABINE [Suspect]
     Active Substance: CYTARABINE
     Dosage: (49 MG, QD, 1X/DAY)/ START DATE: 06-OCT-2017
     Route: 042
     Dates: end: 20171009
  11. CYTARABINE [Suspect]
     Active Substance: CYTARABINE
     Dosage: 188 MILLIGRAM
     Route: 042
  12. VINCRISTINE [Suspect]
     Active Substance: VINCRISTINE
     Indication: Acute lymphocytic leukaemia
     Dosage: 0.9 MILLIGRAM, QD/ START DATE: 17-AUG-2017
     Route: 042
     Dates: end: 20171023
  13. VINCRISTINE [Suspect]
     Active Substance: VINCRISTINE
     Dosage: 0.95 MILLIGRAM
  14. CYCLOPHOSPHAMIDE [Suspect]
     Active Substance: CYCLOPHOSPHAMIDE
     Indication: Acute lymphocytic leukaemia
     Dosage: 650 MILLIGRAM (650 MG, UNK)
     Route: 065
  15. CYCLOPHOSPHAMIDE [Suspect]
     Active Substance: CYCLOPHOSPHAMIDE
     Dosage: 640 MILLIGRAM (640 MG, UNK)

REACTIONS (1)
  - Hypoglycaemia [Recovered/Resolved]

NARRATIVE: CASE EVENT DATE: 20171017
